FAERS Safety Report 6339818-7 (Version None)
Quarter: 2009Q3

REPORT INFORMATION
  Report Type: 
  Country: None (occurrence: None)
  Receive Date: 20090903
  Receipt Date: 20090826
  Transmission Date: 20100115
  Serious: Yes (Other)
  Sender: FDA-Public Use
  Company Number: PHEH2009US09980

PATIENT
  Sex: Female

DRUGS (11)
  1. RECLAST [Suspect]
     Dosage: UNK
     Dates: start: 20090609
  2. SYNTHROID [Concomitant]
  3. OMEPRAZOLE [Concomitant]
  4. SERTRALINE HCL [Concomitant]
  5. ENABLEX [Concomitant]
  6. SINGULAIR [Concomitant]
  7. CLONAZEPAM [Concomitant]
  8. VITAMIN B6 [Concomitant]
  9. FISH OIL [Concomitant]
  10. CALCIUM [Concomitant]
  11. VITAMIN D [Concomitant]

REACTIONS (6)
  - ACTIVITIES OF DAILY LIVING IMPAIRED [None]
  - HYPOCALCAEMIA [None]
  - JAW DISORDER [None]
  - PAIN IN EXTREMITY [None]
  - TOOTH DISORDER [None]
  - TOOTH FRACTURE [None]
